FAERS Safety Report 11636231 (Version 1)
Quarter: 2015Q4

REPORT INFORMATION
  Report Type: Spontaneous
  Country: EG (occurrence: EG)
  Receive Date: 20151016
  Receipt Date: 20151016
  Transmission Date: 20160304
  Serious: Yes (Hospitalization)
  Sender: FDA-Public Use
  Company Number: EG-ROCHE-1643230

PATIENT
  Age: 54 Year
  Sex: Male

DRUGS (2)
  1. IRINOTECAN [Suspect]
     Active Substance: IRINOTECAN
     Indication: MUCINOUS ADENOCARCINOMA OF APPENDIX
     Dosage: 21 DAY CYCLE
     Route: 065
  2. XELODA [Interacting]
     Active Substance: CAPECITABINE
     Indication: MUCINOUS ADENOCARCINOMA OF APPENDIX
     Dosage: 21 DAY CYCLE
     Route: 065

REACTIONS (7)
  - Renal impairment [Unknown]
  - Diarrhoea [Unknown]
  - Acute kidney injury [Unknown]
  - Drug interaction [Unknown]
  - Dehydration [Unknown]
  - Metabolic acidosis [Unknown]
  - Gastroenteritis [Unknown]
